FAERS Safety Report 25205092 (Version 2)
Quarter: 2025Q2

REPORT INFORMATION
  Report Type: Spontaneous
  Country: US (occurrence: US)
  Receive Date: 20250416
  Receipt Date: 20250515
  Transmission Date: 20250716
  Serious: No
  Sender: BAUSCH AND LOMB
  Company Number: US-BAUSCHBL-2025BNL006287

PATIENT
  Sex: Female

DRUGS (1)
  1. TOBRAMYCIN AND DEXAMETHASONE [Suspect]
     Active Substance: DEXAMETHASONE\TOBRAMYCIN
     Indication: Hordeolum
     Dosage: 1 DROP 4 TIMES A DAY IN BOTH EYE FOR 2 WEEKS
     Route: 047
     Dates: start: 20250328

REACTIONS (4)
  - Vision blurred [Unknown]
  - Product delivery mechanism issue [Unknown]
  - Accidental overdose [Unknown]
  - Product use complaint [Unknown]

NARRATIVE: CASE EVENT DATE: 20250301
